FAERS Safety Report 9420610 (Version 1)
Quarter: 2013Q3

REPORT INFORMATION
  Report Type: Spontaneous
  Country: US (occurrence: US)
  Receive Date: 20130725
  Receipt Date: 20130725
  Transmission Date: 20140515
  Serious: No
  Sender: FDA-Public Use
  Company Number: US-ABBOTT-13P-163-1102976-00

PATIENT
  Sex: Female
  Weight: 90.8 kg

DRUGS (7)
  1. SYNTHROID [Suspect]
     Indication: THYROID DISORDER
  2. SYNTHROID [Suspect]
  3. SYNTHROID [Suspect]
     Indication: THYROID DISORDER
  4. LIPITOR [Suspect]
     Indication: BLOOD CHOLESTEROL INCREASED
     Dosage: DAILY
  5. NORVASC [Concomitant]
     Indication: HYPERTENSION
     Dosage: 10 MG
  6. ARTHROTEC [Concomitant]
     Indication: ARTHRITIS
     Dosage: 50 MG/200 MCG  DAILY
  7. ASPIRIN [Concomitant]
     Indication: PRODUCT USED FOR UNKNOWN INDICATION

REACTIONS (4)
  - Urinary tract infection [Unknown]
  - Pruritus [Unknown]
  - Rash [Unknown]
  - Drug intolerance [Unknown]
